FAERS Safety Report 23431428 (Version 1)
Quarter: 2024Q1

REPORT INFORMATION
  Report Type: Report from Study
  Country: CA (occurrence: CA)
  Receive Date: 20240123
  Receipt Date: 20240123
  Transmission Date: 20240410
  Serious: Yes (Other)
  Sender: FDA-Public Use
  Company Number: CA-JNJFOC-20240151745

PATIENT
  Age: 67 Year
  Sex: Female

DRUGS (2)
  1. SIMPONI [Suspect]
     Active Substance: GOLIMUMAB
     Indication: Rheumatoid arthritis
     Route: 058
     Dates: start: 20230829
  2. PREDNISONE [Concomitant]
     Active Substance: PREDNISONE
     Dosage: DOWN TO 40MG

REACTIONS (1)
  - Leukaemia [Recovering/Resolving]
